FAERS Safety Report 14201885 (Version 2)
Quarter: 2017Q4

REPORT INFORMATION
  Report Type: Spontaneous
  Country: US (occurrence: US)
  Receive Date: 20171117
  Receipt Date: 20171205
  Transmission Date: 20180321
  Serious: Yes (Hospitalization)
  Sender: FDA-Public Use
  Company Number: US-ABBVIE-17P-163-2162610-00

PATIENT
  Sex: Female
  Weight: 49.49 kg

DRUGS (6)
  1. CEPHALEXIN. [Concomitant]
     Active Substance: CEPHALEXIN
     Indication: PYELONEPHRITIS
     Dosage: 500 MG
     Dates: start: 2014
  2. VITAMIN B COMPLEX [Concomitant]
     Active Substance: CYANOCOBALAMIN\DEXPANTHENOL\NIACINAMIDE\PYRIDOXINE HYDROCHLORIDE\RIBOFLAVIN 5^-PHOSPHATE SODIUM\THIAMINE HYDROCHLORIDE\VITAMIN B COMPLEX
     Indication: PRODUCT USED FOR UNKNOWN INDICATION
  3. VITAMIN D [Concomitant]
     Active Substance: CHOLECALCIFEROL
     Indication: PRODUCT USED FOR UNKNOWN INDICATION
  4. MAVYRET [Suspect]
     Active Substance: GLECAPREVIR\PIBRENTASVIR
     Indication: CHRONIC HEPATITIS C
     Dosage: 3 TABLETS DAILY
     Route: 048
     Dates: start: 20171009, end: 20171024
  5. MAVYRET [Suspect]
     Active Substance: GLECAPREVIR\PIBRENTASVIR
     Route: 048
     Dates: start: 20171101
  6. MULTIVITAMIN [Concomitant]
     Active Substance: VITAMINS
     Indication: PRODUCT USED FOR UNKNOWN INDICATION

REACTIONS (9)
  - Sepsis [Unknown]
  - Laboratory test abnormal [Not Recovered/Not Resolved]
  - Acute kidney injury [Recovering/Resolving]
  - Pyelonephritis [Recovering/Resolving]
  - Dehydration [Unknown]
  - Headache [Not Recovered/Not Resolved]
  - Blood potassium decreased [Recovering/Resolving]
  - Blood phosphorus decreased [Recovering/Resolving]
  - Pancreatitis acute [Recovering/Resolving]
